FAERS Safety Report 5144177-1 (Version None)
Quarter: 2006Q4

REPORT INFORMATION
  Report Type: 
  Country: None (occurrence: None)
  Receive Date: 20061102
  Receipt Date: 20061102
  Transmission Date: 20070319
  Serious: No
  Sender: FDA-Public Use
  Company Number: None

PATIENT
  Sex: Female

DRUGS (1)
  1. CIPROFLOXACIN 250MG ABRIKA PHARM [Suspect]
     Indication: URINARY TRACT INFECTION
     Dosage: 500MG  BID  PO
     Route: 048
     Dates: start: 20061028, end: 20061031

REACTIONS (7)
  - ATRIAL FIBRILLATION [None]
  - CONFUSIONAL STATE [None]
  - HALLUCINATION [None]
  - HEADACHE [None]
  - HYPERTENSION [None]
  - RESTLESSNESS [None]
  - SYNCOPE [None]
